FAERS Safety Report 8799468 (Version 1)
Quarter: 2012Q4

REPORT INFORMATION
  Report Type: 
  Country: NO (occurrence: NO)
  Receive Date: 20120919
  Receipt Date: 20120919
  Transmission Date: 20130627
  Serious: Yes (Death)
  Sender: FDA-Public Use
  Company Number: NO-EISAI INC-E7389-02993-SPO-NO

PATIENT
  Age: 59 Year
  Sex: Female

DRUGS (4)
  1. HALAVEN [Suspect]
     Indication: INVASIVE DUCTAL BREAST CANCER
     Route: 041
     Dates: start: 2011, end: 201202
  2. HALAVEN [Suspect]
     Indication: METASTASES TO LUNG
  3. HALAVEN [Suspect]
     Indication: METASTASES TO BONE
  4. HALAVEN [Suspect]
     Indication: BRAIN METASTASES

REACTIONS (10)
  - Respiratory failure [Fatal]
  - Anaemia [Unknown]
  - Leukopenia [Unknown]
  - Haematotoxicity [None]
  - Metastases to central nervous system [None]
  - Skin toxicity [None]
  - Fatigue [None]
  - Metastases to lung [None]
  - Malignant neoplasm progression [None]
  - Metastases to liver [None]
